FAERS Safety Report 11682389 (Version 7)
Quarter: 2019Q4

REPORT INFORMATION
  Report Type: Spontaneous
  Country: US (occurrence: US)
  Receive Date: 20151029
  Receipt Date: 20191029
  Transmission Date: 20200122
  Serious: No
  Sender: FDA-Public Use
  Company Number: US-PFIZER INC-2015349029

PATIENT
  Age: 61 Year
  Sex: Female
  Weight: 97 kg

DRUGS (5)
  1. SUTENT [Suspect]
     Active Substance: SUNITINIB MALATE
     Dosage: 37.5 MG, CYCLIC (TAKE 3 CAPSULE BY MOUTH DAILY FOR 28 DAYS FOLLOWED BY 14 DAYS OFF; SUTENT 12.5MG)
     Route: 048
     Dates: start: 201508
  2. SUTENT [Suspect]
     Active Substance: SUNITINIB MALATE
     Indication: RENAL CANCER
     Dosage: 50 MG, CYCLIC (DAILY, FOR 28DAYS FOLLOWED BY 14DAYS OFF)
     Route: 048
     Dates: start: 201508
  3. SUTENT [Suspect]
     Active Substance: SUNITINIB MALATE
     Dosage: 37.5 MG, CYCLIC(TAKE 1 CAPSULE BY MOUTH DAILY FOR 28 DAYS, FOLLOWED BY14 DAYS OFF.)
     Route: 048
  4. LIOTHYRONINE [Concomitant]
     Active Substance: LIOTHYRONINE
     Dosage: 25 MG, UNK
  5. SYNTHROID [Concomitant]
     Active Substance: LEVOTHYROXINE SODIUM
     Dosage: 175 UG, UNK

REACTIONS (12)
  - Fatigue [Unknown]
  - Vomiting [Unknown]
  - Glossodynia [Unknown]
  - Skin lesion [Unknown]
  - Stomatitis [Unknown]
  - Diarrhoea [Unknown]
  - Weight decreased [Unknown]
  - Nausea [Unknown]
  - Decreased appetite [Unknown]
  - Yellow skin [Unknown]
  - Chromaturia [Unknown]
  - Pain in extremity [Unknown]

NARRATIVE: CASE EVENT DATE: 2015
